FAERS Safety Report 16176788 (Version 1)
Quarter: 2019Q2

REPORT INFORMATION
  Report Type: Spontaneous
  Country: US (occurrence: US)
  Receive Date: 20190409
  Receipt Date: 20190409
  Transmission Date: 20190711
  Serious: Yes (Hospitalization)
  Sender: FDA-Public Use
  Company Number: US-MYLANLABS-2019M1032401

PATIENT
  Age: 70 Year
  Sex: Male

DRUGS (4)
  1. METOCLOPRAMIDE. [Suspect]
     Active Substance: METOCLOPRAMIDE
     Indication: VOMITING
     Route: 042
  2. DRONABINOL. [Suspect]
     Active Substance: DRONABINOL
     Indication: HYPOPHAGIA
  3. DRONABINOL. [Suspect]
     Active Substance: DRONABINOL
     Indication: VOMITING
     Dosage: 5 MG THREE TIMES A DAY
     Route: 048
  4. ONDANSETRON [Suspect]
     Active Substance: ONDANSETRON
     Indication: VOMITING
     Route: 042

REACTIONS (1)
  - Drug ineffective [Unknown]
